FAERS Safety Report 14905101 (Version 1)
Quarter: 2018Q2

REPORT INFORMATION
  Report Type: Spontaneous
  Country: US (occurrence: US)
  Receive Date: 20180517
  Receipt Date: 20180517
  Transmission Date: 20180711
  Serious: No
  Sender: FDA-Public Use
  Company Number: US-SA-2017SA184739

PATIENT
  Age: 60 Year
  Sex: Male

DRUGS (5)
  1. LANTUS [Suspect]
     Active Substance: INSULIN GLARGINE
     Dosage: DOSE(24-27 UNITS)
     Route: 051
     Dates: start: 2015
  2. LANTUS [Suspect]
     Active Substance: INSULIN GLARGINE
     Dosage: DOSE(24-27 UNITS)
     Route: 051
     Dates: start: 2015
  3. LANTUS [Suspect]
     Active Substance: INSULIN GLARGINE
     Dosage: DOSE(24-27 UNITS)
     Route: 051
     Dates: start: 2015
  4. LANTUS [Suspect]
     Active Substance: INSULIN GLARGINE
     Dosage: DOSE(24-27 UNITS)
     Route: 051
     Dates: start: 2015
  5. LANTUS [Suspect]
     Active Substance: INSULIN GLARGINE
     Dosage: DOSE(24-27 UNITS)
     Route: 051
     Dates: start: 2015

REACTIONS (2)
  - Blood glucose abnormal [Not Recovered/Not Resolved]
  - Drug ineffective [Unknown]
